FAERS Safety Report 5487002-1 (Version None)
Quarter: 2007Q4

REPORT INFORMATION
  Report Type: 
  Country: None (occurrence: None)
  Receive Date: 20071016
  Receipt Date: 20071003
  Transmission Date: 20080405
  Serious: Yes (Other)
  Sender: FDA-Public Use
  Company Number: GB-RANBAXY-2007RR-10504

PATIENT

DRUGS (5)
  1. SIMVASTATIN 20MG TABLETS [Suspect]
     Indication: BLOOD CHOLESTEROL INCREASED
     Dosage: 20 MG, QD
     Route: 048
     Dates: start: 20070809, end: 20070829
  2. AMLODIPINE [Concomitant]
     Dosage: 10 MG, UNK
     Route: 048
     Dates: start: 20070321
  3. ASPIRIN TABLETS BP 300MG [Concomitant]
     Dosage: 75 MG, UNK
     Route: 048
     Dates: start: 20070321
  4. VALSARTAN [Concomitant]
     Indication: DIABETES MELLITUS
     Dosage: 160 MG, QD
     Route: 048
     Dates: start: 20070321
  5. VALSARTAN [Concomitant]
     Indication: HYPERTENSION

REACTIONS (1)
  - ALOPECIA [None]
